FAERS Safety Report 22089523 (Version 1)
Quarter: 2023Q1

REPORT INFORMATION
  Report Type: Spontaneous
  Country: CH (occurrence: CH)
  Receive Date: 20230313
  Receipt Date: 20230313
  Transmission Date: 20230417
  Serious: Yes (Other)
  Sender: FDA-Public Use
  Company Number: CH-MYLANLABS-2023M1014306

PATIENT
  Sex: Male

DRUGS (2)
  1. XANAX [Suspect]
     Active Substance: ALPRAZOLAM
     Indication: Product used for unknown indication
     Dosage: LOW DOSE
     Route: 065
  2. XANAX [Suspect]
     Active Substance: ALPRAZOLAM
     Dosage: 3 MILLIGRAM, QD (SPREAD 3 TIMES 1 MG THROUGHOUT THE DAY)
     Route: 065

REACTIONS (6)
  - Drug dependence [Unknown]
  - Withdrawal syndrome [Recovered/Resolved]
  - Quality of life decreased [Recovered/Resolved]
  - Fatigue [Recovered/Resolved]
  - Aggression [Recovered/Resolved]
  - Memory impairment [Recovered/Resolved]
